FAERS Safety Report 9658423 (Version 1)
Quarter: 2013Q4

REPORT INFORMATION
  Report Type: Spontaneous
  Country: US (occurrence: US)
  Receive Date: 20131030
  Receipt Date: 20131030
  Transmission Date: 20140711
  Serious: No
  Sender: FDA-Public Use
  Company Number: US-PURDUE-USA-2012-0084654

PATIENT
  Sex: Male

DRUGS (2)
  1. OXYCONTIN (NDA 22-272) [Suspect]
     Indication: BACK DISORDER
     Dosage: 80 MG, BID
  2. OXYCODONE HCL IMMEDIATE RELEASE (91-490) [Suspect]
     Indication: PAIN
     Dosage: 15 MG, SEE TEXT

REACTIONS (7)
  - Concussion [Unknown]
  - Road traffic accident [Unknown]
  - Balance disorder [Unknown]
  - Disorientation [Unknown]
  - Memory impairment [Unknown]
  - Impaired driving ability [Unknown]
  - Confusional state [Unknown]
